FAERS Safety Report 6699192-3 (Version None)
Quarter: 2010Q2

REPORT INFORMATION
  Report Type: 
  Country: None (occurrence: None)
  Receive Date: 20100427
  Receipt Date: 20100419
  Transmission Date: 20101027
  Serious: Yes (Hospitalization, Other)
  Sender: FDA-Public Use
  Company Number: DE-AMGEN-QUU400896

PATIENT
  Sex: Male
  Weight: 63.5 kg

DRUGS (16)
  1. ARANESP [Suspect]
     Indication: DIALYSIS
     Route: 058
     Dates: start: 20090201, end: 20100301
  2. PROGRAF [Concomitant]
     Route: 048
     Dates: start: 20020801
  3. BISOPROLOL [Concomitant]
     Route: 048
  4. PREDNISOLONE [Concomitant]
     Route: 048
  5. ASPIRIN [Concomitant]
     Route: 048
  6. TORASEMIDE [Concomitant]
     Route: 048
  7. PRAVASTATIN [Concomitant]
     Route: 048
  8. RAMIPRIL [Concomitant]
     Route: 048
  9. BONDIOL [Concomitant]
  10. OMEPRAZOLE [Concomitant]
     Route: 048
  11. FOLSAN [Concomitant]
     Route: 048
  12. BENZBROMARONE [Concomitant]
     Route: 048
  13. ISCOVER [Concomitant]
     Dates: end: 20091101
  14. EINSALPHA [Concomitant]
  15. IRON [Concomitant]
  16. CHOLECALCIFEROL [Concomitant]

REACTIONS (3)
  - DIVERTICULITIS [None]
  - HYPOTHYROIDISM [None]
  - THERAPEUTIC RESPONSE DECREASED [None]
